FAERS Safety Report 13054140 (Version 6)
Quarter: 2017Q3

REPORT INFORMATION
  Report Type: Report from Study
  Country: US (occurrence: US)
  Receive Date: 20161222
  Receipt Date: 20170928
  Transmission Date: 20171127
  Serious: Yes (Hospitalization)
  Sender: FDA-Public Use
  Company Number: US-EISAI MEDICAL RESEARCH-EC-2016-022126

PATIENT
  Age: 68 Year
  Sex: Female

DRUGS (24)
  1. COMPAZINE [Concomitant]
     Active Substance: PROCHLORPERAZINE MALEATE
  2. LASIX [Concomitant]
     Active Substance: FUROSEMIDE
  3. SIMVASTATIN. [Concomitant]
     Active Substance: SIMVASTATIN
  4. CREON [Concomitant]
     Active Substance: PANCRELIPASE AMYLASE\PANCRELIPASE LIPASE\PANCRELIPASE PROTEASE
  5. HYDRALAZINE [Concomitant]
     Active Substance: HYDRALAZINE HYDROCHLORIDE
  6. NORVASC [Concomitant]
     Active Substance: AMLODIPINE BESYLATE
  7. KLONOPIN [Concomitant]
     Active Substance: CLONAZEPAM
  8. ZOFRAN [Concomitant]
     Active Substance: ONDANSETRON HYDROCHLORIDE
  9. LOSARTAN-HYDROCHLOROTHIAZIDE [Concomitant]
     Active Substance: HYDROCHLOROTHIAZIDE\LOSARTAN
  10. POTASSIUM CHLORIDE. [Concomitant]
     Active Substance: POTASSIUM CHLORIDE
  11. LENVIMA [Suspect]
     Active Substance: LENVATINIB
     Indication: THYROID CANCER
     Route: 048
     Dates: start: 20161101, end: 201612
  12. CATAPRES [Concomitant]
     Active Substance: CLONIDINE HYDROCHLORIDE
  13. SYNTHROID [Concomitant]
     Active Substance: LEVOTHYROXINE SODIUM
  14. INDOMETHACIN. [Concomitant]
     Active Substance: INDOMETHACIN
  15. LENVIMA [Suspect]
     Active Substance: LENVATINIB
     Route: 048
     Dates: start: 201612, end: 2017
  16. LENVIMA [Suspect]
     Active Substance: LENVATINIB
     Route: 048
     Dates: start: 2017
  17. METFORMIN [Concomitant]
     Active Substance: METFORMIN HYDROCHLORIDE
  18. ATENOLOL. [Concomitant]
     Active Substance: ATENOLOL
  19. TRAMADOL. [Concomitant]
     Active Substance: TRAMADOL
  20. LOPID [Concomitant]
     Active Substance: GEMFIBROZIL
  21. ASPIRIN. [Concomitant]
     Active Substance: ASPIRIN
  22. BACTRIM [Concomitant]
     Active Substance: SULFAMETHOXAZOLE\TRIMETHOPRIM
  23. CARBAMAZEPINE. [Concomitant]
     Active Substance: CARBAMAZEPINE
  24. TEMAZEPAM. [Concomitant]
     Active Substance: TEMAZEPAM

REACTIONS (24)
  - Headache [Unknown]
  - Hyperlipidaemia [Unknown]
  - Asthenia [Unknown]
  - Nausea [Unknown]
  - Weight decreased [Not Recovered/Not Resolved]
  - Oral pain [Not Recovered/Not Resolved]
  - Balance disorder [Unknown]
  - Decreased appetite [Unknown]
  - Fatigue [Unknown]
  - Sunburn [Unknown]
  - Oedema peripheral [Not Recovered/Not Resolved]
  - Vomiting [Unknown]
  - Diarrhoea [Unknown]
  - Hypertension [Unknown]
  - Back pain [Unknown]
  - Odynophagia [Unknown]
  - Blood potassium decreased [Recovering/Resolving]
  - Fall [Unknown]
  - Thyroid function test abnormal [Not Recovered/Not Resolved]
  - Dysphagia [Unknown]
  - Alopecia [Unknown]
  - Lower respiratory tract infection [Not Recovered/Not Resolved]
  - Oropharyngeal pain [Unknown]
  - Feeling cold [Unknown]

NARRATIVE: CASE EVENT DATE: 2016
